FAERS Safety Report 12609895 (Version 1)
Quarter: 2016Q3

REPORT INFORMATION
  Report Type: Spontaneous
  Country: US (occurrence: US)
  Receive Date: 20160801
  Receipt Date: 20160801
  Transmission Date: 20161109
  Serious: No
  Sender: FDA-Public Use
  Company Number: US-DRREDDYS-USA/USA/15/0053401

PATIENT
  Age: 72 Year
  Sex: Male
  Weight: 77.56 kg

DRUGS (1)
  1. OMEPRAZOLE MAGNESIUM DELAYED RELEASE OTC [Suspect]
     Active Substance: OMEPRAZOLE MAGNESIUM
     Indication: GASTRIC DISORDER
     Route: 065

REACTIONS (1)
  - Anaemia [Not Recovered/Not Resolved]
